FAERS Safety Report 16632100 (Version 1)
Quarter: 2019Q3

REPORT INFORMATION
  Report Type: Spontaneous
  Country: NO (occurrence: NO)
  Receive Date: 20190725
  Receipt Date: 20190725
  Transmission Date: 20191004
  Serious: Yes (Other)
  Sender: FDA-Public Use
  Company Number: NO-PFIZER INC-2019314752

PATIENT
  Age: 52 Year
  Sex: Female
  Weight: 80 kg

DRUGS (8)
  1. FISH OIL [Concomitant]
     Active Substance: FISH OIL
     Dosage: UNK
  2. ZYRTEC [Concomitant]
     Active Substance: CETIRIZINE HYDROCHLORIDE
     Dosage: UNK
     Dates: start: 19910101
  3. LEVAXIN [Concomitant]
     Active Substance: LEVOTHYROXINE SODIUM
     Dosage: UNK
     Dates: start: 20000101
  4. ATACAND [Concomitant]
     Active Substance: CANDESARTAN CILEXETIL
     Dosage: UNK
     Dates: start: 20190201
  5. NEURONTIN [Suspect]
     Active Substance: GABAPENTIN
     Indication: PAIN
     Dosage: 300 MG, 1X/DAY
     Dates: start: 20190418, end: 20190419
  6. TRISEKVENS [ESTRADIOL;NORETHISTERONE ACETATE] [Concomitant]
     Dosage: UNK
     Dates: start: 20181001
  7. METOPROLOL SANDOZ [METOPROLOL SUCCINATE] [Concomitant]
     Dosage: UNK
     Dates: start: 20190401
  8. SOMAC [Concomitant]
     Active Substance: PANTOPRAZOLE SODIUM
     Dosage: UNK
     Dates: start: 20000101

REACTIONS (9)
  - Rash [Unknown]
  - Pruritus [Unknown]
  - Dyspnoea [Unknown]
  - Mouth swelling [Unknown]
  - Urticaria [Unknown]
  - Swelling face [Unknown]
  - Headache [Unknown]
  - Dark circles under eyes [Unknown]
  - Cushingoid [Unknown]

NARRATIVE: CASE EVENT DATE: 201904
